FAERS Safety Report 12369931 (Version 1)
Quarter: 2016Q2

REPORT INFORMATION
  Report Type: Spontaneous
  Country: US (occurrence: US)
  Receive Date: 20160516
  Receipt Date: 20160516
  Transmission Date: 20160815
  Serious: No
  Sender: FDA-Public Use
  Company Number: US-ASTRAZENECA-2016SE50762

PATIENT
  Age: 69 Year
  Sex: Female
  Weight: 97.7 kg

DRUGS (1)
  1. NEXIUM 24HR [Suspect]
     Active Substance: ESOMEPRAZOLE MAGNESIUM
     Indication: GASTROOESOPHAGEAL REFLUX DISEASE
     Route: 048

REACTIONS (3)
  - Extra dose administered [Unknown]
  - Product use issue [Unknown]
  - Distractibility [Unknown]

NARRATIVE: CASE EVENT DATE: 20160503
